FAERS Safety Report 20797661 (Version 1)
Quarter: 2022Q2

REPORT INFORMATION
  Report Type: Spontaneous
  Country: US (occurrence: US)
  Receive Date: 20220506
  Receipt Date: 20220506
  Transmission Date: 20220720
  Serious: No
  Sender: FDA-Public Use
  Company Number: US-PFIZER INC-202200483463

PATIENT
  Age: 8 Year
  Sex: Female
  Weight: 24.5 kg

DRUGS (6)
  1. XELJANZ [Suspect]
     Active Substance: TOFACITINIB CITRATE
     Dosage: UNK
  2. REMODULIN [Suspect]
     Active Substance: TREPROSTINIL
     Indication: Pulmonary arterial hypertension
     Dosage: 0.049 UG/KG
     Route: 041
     Dates: start: 20170605
  3. TADALAFIL [Suspect]
     Active Substance: TADALAFIL
     Dosage: UNK
  4. AMBRISENTAN [Suspect]
     Active Substance: AMBRISENTAN
     Dosage: UNK
  5. JANTOVEN [Suspect]
     Active Substance: WARFARIN SODIUM
     Dosage: UNK
  6. EPOPROSTENOL SODIUM [Concomitant]
     Active Substance: EPOPROSTENOL SODIUM
     Dosage: UNK

REACTIONS (2)
  - Somnambulism [Unknown]
  - International normalised ratio decreased [Unknown]
